FAERS Safety Report 8343981-6 (Version None)
Quarter: 2012Q1

REPORT INFORMATION
  Report Type: 
  Country: None (occurrence: None)
  Receive Date: 20120330
  Receipt Date: 20110512
  Transmission Date: 20120608
  Serious: Yes (Hospitalization)
  Sender: FDA-Public Use
  Company Number: PHHY2011US41525

PATIENT
  Age: 89 Year
  Sex: Female
  Weight: 77.1 kg

DRUGS (1)
  1. EXELON [Suspect]
     Indication: DEMENTIA
     Dosage: 4.6 MG, 1 PATCH DAILY, TRANSDERMAL
     Route: 062
     Dates: start: 20101201, end: 20110301

REACTIONS (1)
  - HEART RATE DECREASED [None]
